FAERS Safety Report 22284119 (Version 1)
Quarter: 2023Q2

REPORT INFORMATION
  Report Type: Spontaneous
  Country: US (occurrence: US)
  Receive Date: 20230504
  Receipt Date: 20230504
  Transmission Date: 20230722
  Serious: Yes (Hospitalization)
  Sender: FDA-Public Use
  Company Number: US-AMNEAL PHARMACEUTICALS-2023-AMRX-01465

PATIENT
  Sex: Female

DRUGS (3)
  1. VIGABATRIN [Suspect]
     Active Substance: VIGABATRIN
     Indication: Epilepsy
     Dosage: 7.5ML TWICE DAILY
     Route: 048
     Dates: start: 202304
  2. KEPPRA [Concomitant]
     Active Substance: LEVETIRACETAM
     Indication: Seizure
     Dosage: EVERY 12 HOURS
     Route: 065
  3. ONFI [Concomitant]
     Active Substance: CLOBAZAM
     Indication: Seizure
     Dosage: 2.5 ML EVERY 12 HOURS

REACTIONS (2)
  - Rash erythematous [Recovered/Resolved]
  - Infection [Recovered/Resolved]
